FAERS Safety Report 15497943 (Version 4)
Quarter: 2018Q4

REPORT INFORMATION
  Report Type: Spontaneous
  Country: US (occurrence: US)
  Receive Date: 20181015
  Receipt Date: 20181120
  Transmission Date: 20190205
  Serious: No
  Sender: FDA-Public Use
  Company Number: US-PFIZER INC-2018408381

PATIENT
  Age: 79 Year
  Sex: Female
  Weight: 94.8 kg

DRUGS (13)
  1. CALCIUM CITRATE [Concomitant]
     Active Substance: CALCIUM CITRATE
     Dosage: UNK
  2. ACETAMINOPHEN. [Concomitant]
     Active Substance: ACETAMINOPHEN
     Dosage: UNK UNK, AS NEEDED
  3. AZELASTINE. [Concomitant]
     Active Substance: AZELASTINE HYDROCHLORIDE
     Indication: SINUS DISORDER
     Dosage: 4 DF, 2X/DAY (2 SPRAYS IN EACH NOSTRIL 2 TIMES A DAY)
     Route: 045
  4. VITAMIN D3 [Concomitant]
     Active Substance: CHOLECALCIFEROL
     Dosage: UNK
  5. IBRANCE [Suspect]
     Active Substance: PALBOCICLIB
     Indication: BREAST CANCER STAGE IV
     Dosage: 100 MG, CYCLIC (ONCE DAILY-21 DAYS THEN 1 WEEK OFF)
     Dates: start: 201801
  6. IPRATROPIUM [Concomitant]
     Active Substance: IPRATROPIUM
     Indication: SINUS DISORDER
     Dosage: 4 DF, 2X/DAY (2 SPRAYS IN EACH NOSTRIL 2 TIMES A DAY)
     Route: 045
  7. TURMERIC [CURCUMA LONGA RHIZOME] [Concomitant]
     Dosage: UNK
  8. VITAMIN B COMPLEX [Concomitant]
     Active Substance: CYANOCOBALAMIN\DEXPANTHENOL\NIACINAMIDE\PYRIDOXINE HYDROCHLORIDE\RIBOFLAVIN 5^-PHOSPHATE SODIUM\THIAMINE HYDROCHLORIDE\VITAMIN B COMPLEX
     Dosage: UNK
  9. LETROZOLE. [Concomitant]
     Active Substance: LETROZOLE
     Indication: BREAST CANCER STAGE IV
     Dosage: 2.5 MG, 1X/DAY (ONCE A DAY EVERYDAY BY MOUTH)
     Route: 048
     Dates: start: 201801
  10. FLUTICASONE. [Concomitant]
     Active Substance: FLUTICASONE
     Indication: SINUS DISORDER
     Dosage: 4 DF, 1X/DAY (2 SPRAYS IN EACH NOSTRIL ONCE A DAY)
     Route: 045
  11. COENZYME Q10 [Concomitant]
     Active Substance: UBIDECARENONE
     Dosage: UNK
  12. BIOTIN [Concomitant]
     Active Substance: BIOTIN
     Dosage: UNK (TAKES ABOUT 3 TIMES A WEEK)
  13. MAGNESIUM OXIDE. [Concomitant]
     Active Substance: MAGNESIUM OXIDE
     Dosage: UNK

REACTIONS (4)
  - Gingival recession [Not Recovered/Not Resolved]
  - Onychoclasis [Not Recovered/Not Resolved]
  - Abdominal pain [Not Recovered/Not Resolved]
  - Gingival pain [Not Recovered/Not Resolved]

NARRATIVE: CASE EVENT DATE: 2018
